FAERS Safety Report 7890140-7 (Version None)
Quarter: 2011Q4

REPORT INFORMATION
  Report Type: 
  Country: None (occurrence: None)
  Receive Date: 20111103
  Receipt Date: 20111101
  Transmission Date: 20120403
  Serious: Yes (Hospitalization)
  Sender: FDA-Public Use
  Company Number: NL-ABBOTT-10P-114-0661940-00

PATIENT
  Sex: Male
  Weight: 89 kg

DRUGS (15)
  1. DICLOFENAC SODIUM [Concomitant]
     Indication: PAIN
     Route: 048
     Dates: start: 20100101
  2. ALBUTEROL SULFATE AUTOHALER [Concomitant]
     Indication: CHRONIC OBSTRUCTIVE PULMONARY DISEASE
     Dosage: 100MCG/DOSE200 DOSE VOLUME AS NEEDED
     Dates: start: 19950101
  3. PANTOPRAZOLE [Concomitant]
     Indication: GASTRIC DISORDER
     Dosage: MSR
     Route: 048
     Dates: end: 20091201
  4. ACETAMINOPHEN [Concomitant]
     Indication: PRODUCT USED FOR UNKNOWN INDICATION
     Dosage: AS NEEDED
  5. HUMIRA [Suspect]
     Route: 058
     Dates: start: 20100201, end: 20100301
  6. FOLIC ACID [Concomitant]
     Indication: SUPPLEMENTATION THERAPY
     Dates: start: 20080101
  7. OMEPRAZOLE [Concomitant]
     Indication: GASTRIC DISORDER
     Route: 048
     Dates: start: 20100101
  8. PANTOPRAZOLE [Concomitant]
     Indication: PROPHYLAXIS
  9. HUMIRA [Suspect]
     Route: 058
     Dates: start: 20100501
  10. METHOTREXATE [Concomitant]
     Indication: RHEUMATOID ARTHRITIS
     Dates: start: 20080101
  11. HUMIRA [Suspect]
     Route: 058
     Dates: end: 20100101
  12. PREDNISOLONE [Concomitant]
     Indication: PRODUCT USED FOR UNKNOWN INDICATION
     Dates: start: 20100101, end: 20100101
  13. HUMIRA [Suspect]
     Indication: RHEUMATOID ARTHRITIS
     Route: 058
     Dates: start: 20090805, end: 20091001
  14. MONTELUKAST SODIUM [Concomitant]
     Indication: CHRONIC OBSTRUCTIVE PULMONARY DISEASE
     Dosage: AT NIGHT
     Route: 048
     Dates: start: 20050101
  15. OMEPRAZOLE [Concomitant]
     Indication: PROPHYLAXIS

REACTIONS (4)
  - PLEURISY [None]
  - FATIGUE [None]
  - PYREXIA [None]
  - PNEUMONIA [None]
